FAERS Safety Report 15522895 (Version 3)
Quarter: 2019Q1

REPORT INFORMATION
  Report Type: Report from Study
  Country: AT (occurrence: AT)
  Receive Date: 20181017
  Receipt Date: 20190322
  Transmission Date: 20190417
  Serious: Yes (Hospitalization, Other)
  Sender: FDA-Public Use
  Company Number: AT-BRISTOL-MYERS SQUIBB COMPANY-BMS-2018-095425

PATIENT
  Age: 62 Year
  Sex: Male
  Weight: 97 kg

DRUGS (3)
  1. IPILIMUMAB [Suspect]
     Active Substance: IPILIMUMAB
     Indication: RENAL CELL CARCINOMA
     Dosage: 97 MILLIGRAM, Q6WK
     Route: 065
     Dates: start: 20180828
  2. HYDAL [Concomitant]
     Active Substance: HYDROMORPHONE HYDROCHLORIDE
     Indication: PAIN
     Dosage: 3 MILLIGRAM
     Route: 048
     Dates: start: 20180927, end: 20181009
  3. NIVOLUMAB [Suspect]
     Active Substance: NIVOLUMAB
     Indication: RENAL CELL CARCINOMA
     Dosage: 240 MILLIGRAM, Q3WK
     Route: 065
     Dates: start: 20180702

REACTIONS (2)
  - Pathological fracture [Recovered/Resolved]
  - Metastases to bone [Recovered/Resolved]

NARRATIVE: CASE EVENT DATE: 20180731
